FAERS Safety Report 17049271 (Version 2)
Quarter: 2025Q4

REPORT INFORMATION
  Report Type: Spontaneous
  Country: EU (occurrence: EU)
  Receive Date: 20191119
  Receipt Date: 20251204
  Transmission Date: 20260118
  Serious: Yes (Life-Threatening, Hospitalization)
  Sender: NOVARTIS
  Company Number: EU-NOVARTISPH-PHHY2019NL203083

PATIENT
  Age: 8 Year
  Sex: Male
  Weight: 26.7 kg

DRUGS (15)
  1. KYMRIAH [Suspect]
     Active Substance: TISAGENLECLEUCEL
     Indication: Acute lymphocytic leukaemia recurrent
     Dosage: UNK
     Route: 042
     Dates: start: 20190813, end: 20190813
  2. ALLOPURINOL [Concomitant]
     Active Substance: ALLOPURINOL
     Indication: Product used for unknown indication
     Dosage: 100 MG, TID
     Route: 048
  3. ESOMEPRAZOLE [Concomitant]
     Active Substance: ESOMEPRAZOLE
     Indication: Product used for unknown indication
     Dosage: 20 MG, QD
     Route: 042
  4. GRANISETRON [Concomitant]
     Active Substance: GRANISETRON
     Indication: Product used for unknown indication
     Dosage: 1 MG, BID
     Route: 042
  5. CIPROFLOXACIN [Concomitant]
     Active Substance: CIPROFLOXACIN
     Indication: Product used for unknown indication
     Dosage: 375 MG, BID
     Route: 048
  6. CLEMASTINE [Concomitant]
     Active Substance: CLEMASTINE
     Indication: Product used for unknown indication
     Dosage: 1 MG, PRN
     Route: 042
  7. POTASSIUM CHLORIDE [Concomitant]
     Active Substance: POTASSIUM CHLORIDE
     Indication: Product used for unknown indication
     Dosage: 15 MMOL, BID
     Route: 048
  8. ACETAMINOPHEN [Concomitant]
     Active Substance: ACETAMINOPHEN
     Indication: Product used for unknown indication
     Dosage: 300 MG, 6DD
     Route: 042
  9. VORICONAZOLE [Concomitant]
     Active Substance: VORICONAZOLE
     Indication: Product used for unknown indication
     Dosage: 175 MG, BID
     Route: 042
  10. PREDNISONE [Concomitant]
     Active Substance: PREDNISONE
     Indication: Product used for unknown indication
     Dosage: 2DD 1 DROP LEFT EYE (PHASE-OUT SCHEME PER WEEK)
     Route: 047
  11. PREDNISONE [Concomitant]
     Active Substance: PREDNISONE
     Dosage: 10 MG/ML (1DD 1 DROP RIGHT EYE)
     Route: 047
  12. DORZOLAMIDE\TIMOLOL [Concomitant]
     Active Substance: DORZOLAMIDE\TIMOLOL
     Indication: Product used for unknown indication
     Dosage: UNK MG/ML (2DD 1 DROP LEFT EYE)
     Route: 047
  13. CALCIUM\VITAMIN D [Concomitant]
     Active Substance: CALCIUM\VITAMIN D
     Indication: Product used for unknown indication
     Dosage: 1 DF, QD
     Route: 048
  14. VALACYCLOVIR HYDROCHLORIDE [Concomitant]
     Active Substance: VALACYCLOVIR HYDROCHLORIDE
     Indication: Product used for unknown indication
     Dosage: 250 MG, BID
     Route: 065
  15. LEVETIRACETAM [Concomitant]
     Active Substance: LEVETIRACETAM
     Indication: Product used for unknown indication
     Dosage: 250 MG, BID
     Route: 048

REACTIONS (6)
  - Blood pressure decreased [Recovered/Resolved]
  - Cytokine release syndrome [Unknown]
  - Pyrexia [Recovered/Resolved]
  - C-reactive protein decreased [Unknown]
  - Serum ferritin decreased [Unknown]
  - Bone marrow failure [Unknown]

NARRATIVE: CASE EVENT DATE: 20190821
